FAERS Safety Report 8889882 (Version 1)
Quarter: 2012Q4

REPORT INFORMATION
  Report Type: Spontaneous
  Country: US (occurrence: None)
  Receive Date: 20121105
  Receipt Date: 20121105
  Transmission Date: 20130627
  Serious: Yes (Life-Threatening)
  Sender: FDA-Public Use
  Company Number: None

PATIENT
  Age: 31 Year
  Sex: Female
  Weight: 70.31 kg

DRUGS (1)
  1. TOPAMAX [Suspect]

REACTIONS (8)
  - Fall [None]
  - Gait disturbance [None]
  - Speech disorder [None]
  - Memory impairment [None]
  - Palpitations [None]
  - Pyrexia [None]
  - Chills [None]
  - Heart rate increased [None]
